FAERS Safety Report 23651339 (Version 1)
Quarter: 2024Q1

REPORT INFORMATION
  Report Type: Spontaneous
  Country: US (occurrence: US)
  Receive Date: 20240320
  Receipt Date: 20240320
  Transmission Date: 20240410
  Serious: Yes (Other)
  Sender: FDA-Public Use
  Company Number: US-ALEMBIC PHARMACUETICALS LIMITED-2024SCAL000243

PATIENT

DRUGS (2)
  1. LEVETIRACETAM [Suspect]
     Active Substance: LEVETIRACETAM
     Indication: Seizure
     Dosage: UNK
     Route: 065
  2. DIVALPROEX SODIUM [Concomitant]
     Active Substance: DIVALPROEX SODIUM
     Indication: Seizure
     Dosage: UNK
     Route: 065

REACTIONS (6)
  - Encephalopathy [Recovered/Resolved]
  - Speech disorder [Recovered/Resolved]
  - Feeding disorder [Recovered/Resolved]
  - Ataxia [Recovered/Resolved]
  - Choreoathetosis [Recovered/Resolved]
  - Dyskinesia [Recovered/Resolved]
